FAERS Safety Report 8557100-4 (Version None)
Quarter: 2012Q3

REPORT INFORMATION
  Report Type: 
  Country: None (occurrence: None)
  Receive Date: 20120720
  Receipt Date: 20120705
  Transmission Date: 20120928
  Serious: Yes (Hospitalization, Other)
  Sender: FDA-Public Use
  Company Number: 2012P1047460

PATIENT
  Age: 62 Year
  Sex: Male

DRUGS (6)
  1. CEFUROXIME SODIUM [Suspect]
     Indication: PROPHYLAXIS
     Dosage: 1.5 GM; BID; IV
     Route: 042
     Dates: start: 20120526, end: 20120528
  2. RANITIDINE HYDROCHLORIDE [Concomitant]
  3. COMPOUND AMINO ACID 18AA [Concomitant]
  4. METRONIDAZOLE [Concomitant]
  5. NEOSTIGMINE METHYLSULPHATE [Concomitant]
  6. BATROXOBIN [Concomitant]

REACTIONS (3)
  - DERMATITIS EXFOLIATIVE [None]
  - RASH ERYTHEMATOUS [None]
  - ULCERATIVE KERATITIS [None]
